FAERS Safety Report 5958681-7 (Version None)
Quarter: 2008Q4

REPORT INFORMATION
  Report Type: 
  Country: None (occurrence: None)
  Receive Date: 20081119
  Receipt Date: 20081110
  Transmission Date: 20090506
  Serious: Yes (Other)
  Sender: FDA-Public Use
  Company Number: JP-PFIZER INC-2008095484

PATIENT

DRUGS (1)
  1. HALCION [Suspect]

REACTIONS (3)
  - AMNESIA [None]
  - HEADACHE [None]
  - LOSS OF CONSCIOUSNESS [None]
